FAERS Safety Report 19003121 (Version 1)
Quarter: 2021Q1

REPORT INFORMATION
  Report Type: Spontaneous
  Country: BR (occurrence: BR)
  Receive Date: 20210312
  Receipt Date: 20210312
  Transmission Date: 20210420
  Serious: Yes (Hospitalization, Other)
  Sender: FDA-Public Use
  Company Number: BR-ORGANON-O2103BRA000419

PATIENT
  Age: 39 Year
  Sex: Male

DRUGS (13)
  1. LOSARTAN POTASSIUM. [Suspect]
     Active Substance: LOSARTAN POTASSIUM
     Indication: HYPERTENSION
     Dosage: 50 MILLIGRAM, QD
     Route: 048
  2. RIVOTRIL [Suspect]
     Active Substance: CLONAZEPAM
     Dosage: 1 TABLET OF 2.5 MG, IF WAS UNABLE TO SLEEP
  3. ELIFORE [Suspect]
     Active Substance: DESVENLAFAXINE SUCCINATE
     Dosage: STRENGTH: 100 MG, 1 TABLET IN THE MORNING
     Route: 048
  4. RIVOTRIL [Suspect]
     Active Substance: CLONAZEPAM
     Dosage: 1 TABLET OF 2.5 MG AT BEDTIME
     Route: 048
  5. ZOLPIDEM [Suspect]
     Active Substance: ZOLPIDEM TARTRATE
     Dosage: 2 TABLETS OF 10 MILLIGRAM, AT NIGHT
     Route: 048
  6. ELIFORE [Suspect]
     Active Substance: DESVENLAFAXINE SUCCINATE
     Indication: DEPRESSION
     Dosage: STRENGTH: 50 MILLIGRAM (MG), 2 TABLETS IN THE MORNING
     Route: 048
     Dates: start: 202005
  7. RIVOTRIL [Suspect]
     Active Substance: CLONAZEPAM
     Dosage: 15 GTT DROPS
  8. AKINETON [Suspect]
     Active Substance: BIPERIDEN HYDROCHLORIDE
     Dosage: 2 MILLIGRAM (1 TABLET), IN THE MORNING
     Route: 048
     Dates: start: 202101
  9. DEPAKOTE [Suspect]
     Active Substance: DIVALPROEX SODIUM
     Dosage: 2 TABLETS OF 500MG, AT NIGHT
     Route: 048
  10. DESVENLAFAXINE. [Suspect]
     Active Substance: DESVENLAFAXINE
     Dosage: 2 TABLETS
     Route: 048
  11. HALOPERIDOL. [Suspect]
     Active Substance: HALOPERIDOL
     Dosage: 1 TABLET ? 5 MG ? PER DAY
     Route: 048
  12. QUETIAPINE. [Suspect]
     Active Substance: QUETIAPINE
     Dosage: 1 TABLET ? 100 MG PER DAY
     Route: 048
  13. TOPIRAMATE. [Suspect]
     Active Substance: TOPIRAMATE
     Dosage: AT NIGHT

REACTIONS (6)
  - Alcohol abuse [Not Recovered/Not Resolved]
  - Liver injury [Not Recovered/Not Resolved]
  - Depression [Not Recovered/Not Resolved]
  - Bipolar disorder [Unknown]
  - Drug abuse [Unknown]
  - Hepatic steatosis [Not Recovered/Not Resolved]

NARRATIVE: CASE EVENT DATE: 20201115
